FAERS Safety Report 10144321 (Version 1)
Quarter: 2014Q2

REPORT INFORMATION
  Report Type: Spontaneous
  Country: US (occurrence: US)
  Receive Date: 20140430
  Receipt Date: 20140430
  Transmission Date: 20141212
  Serious: Yes (Hospitalization, Other)
  Sender: FDA-Public Use
  Company Number: US-BRISTOL-MYERS SQUIBB COMPANY-20646576

PATIENT
  Age: 45 Year
  Sex: Male

DRUGS (3)
  1. BARACLUDE [Suspect]
     Indication: HEPATITIS B
     Dosage: DOSE REDUCED:0.5MG/DAY
  2. TACROLIMUS [Suspect]
  3. MAGNESIUM [Concomitant]

REACTIONS (3)
  - Pyrexia [Unknown]
  - Infection [Unknown]
  - Liver transplant [Unknown]
